FAERS Safety Report 22999851 (Version 2)
Quarter: 2024Q2

REPORT INFORMATION
  Report Type: Spontaneous
  Country: DE (occurrence: DE)
  Receive Date: 20230928
  Receipt Date: 20240605
  Transmission Date: 20240716
  Serious: Yes (Other)
  Sender: FDA-Public Use
  Company Number: None

PATIENT
  Age: 8 Decade

DRUGS (32)
  1. DOXORUBICIN [Suspect]
     Active Substance: DOXORUBICIN
     Indication: Plasma cell myeloma
     Dosage: BRIDGING THERAPY, THIRD CYCLE
     Route: 065
     Dates: start: 20230706
  2. DOXORUBICIN [Suspect]
     Active Substance: DOXORUBICIN
     Indication: Plasma cell myeloma
     Dosage: BRIDGING THERAPY, THIRD CYCLE
     Route: 065
     Dates: start: 20230705
  3. DOXORUBICIN [Suspect]
     Active Substance: DOXORUBICIN
     Indication: Plasma cell myeloma
     Dosage: BRIDGING THERAPY, SECOND CYCLE
     Route: 065
     Dates: start: 20230615
  4. DOXORUBICIN [Suspect]
     Active Substance: DOXORUBICIN
     Indication: Plasma cell myeloma
     Dosage: BRIDGING THERAPY, SECOND CYCLE
     Route: 065
     Dates: start: 20230613
  5. DOXORUBICIN [Suspect]
     Active Substance: DOXORUBICIN
     Indication: Plasma cell myeloma
     Dosage: BRIDGING THERAPY, SECOND CYCLE
     Route: 065
     Dates: start: 20230614
  6. DOXORUBICIN [Suspect]
     Active Substance: DOXORUBICIN
     Indication: Plasma cell myeloma
     Dosage: BRIDGING THERAPY, FOURTH CYCLE
     Route: 065
     Dates: start: 20230805, end: 20230808
  7. DOXORUBICIN [Suspect]
     Active Substance: DOXORUBICIN
     Indication: Plasma cell myeloma
     Dosage: BRIDGING THERAPY, THIRD CYCLE
     Route: 065
     Dates: start: 20230707
  8. DOXORUBICIN [Suspect]
     Active Substance: DOXORUBICIN
     Indication: Plasma cell myeloma
     Dosage: BRIDGING THERAPY, C1
     Route: 065
     Dates: start: 20230517, end: 20230520
  9. POMALIDOMIDE [Suspect]
     Active Substance: POMALIDOMIDE
     Indication: Plasma cell myeloma
     Dosage: 2 MG, D1-3, BRIDGING THERAPY, THIRD CYCLE, AS A PART OF SHORTENED PROTOCOL POM-PAD-DARA
     Route: 065
     Dates: start: 20230704, end: 20230707
  10. POMALIDOMIDE [Suspect]
     Active Substance: POMALIDOMIDE
     Indication: Plasma cell myeloma
     Dosage: 4 MG, D1-14, BRIDGING THERAPY
     Route: 065
     Dates: start: 20230516, end: 20230530
  11. POMALIDOMIDE [Suspect]
     Active Substance: POMALIDOMIDE
     Indication: Plasma cell myeloma
     Dosage: 4 MG, D1-3, BRIDGING THERAPY, SECOND CYCLE, AS A PART OF SHORTENED PROTOCOL POM-PAD-DARA
     Route: 065
     Dates: start: 20230512, end: 20230615
  12. BORTEZOMIB [Suspect]
     Active Substance: BORTEZOMIB
     Indication: Plasma cell myeloma
     Dosage: 1.3 MG/M2, D1, BRIDGING THERAPY, SECOND CYCLE, AS A PART OF SHORTENED PROTOCOL POM-PAD-DARA
     Route: 065
     Dates: start: 20230612
  13. BORTEZOMIB [Suspect]
     Active Substance: BORTEZOMIB
     Indication: Plasma cell myeloma
     Dosage: 1.3 MG/M2, D4, BRIDGING THERAPY
     Route: 065
     Dates: start: 20230520
  14. BORTEZOMIB [Suspect]
     Active Substance: BORTEZOMIB
     Indication: Plasma cell myeloma
     Dosage: 1.3 MG/M2, D1, BRIDGING THERAPY
     Route: 065
     Dates: start: 20230516
  15. BORTEZOMIB [Suspect]
     Active Substance: BORTEZOMIB
     Indication: Plasma cell myeloma
     Dosage: 1.3 MG/M2, D1, BRIDGING THERAPY, THIRD CYCLE, AS A PART OF SHORTENED PROTOCOL POM-PAD-DARA
     Route: 065
     Dates: start: 20230704
  16. DARATUMUMAB [Suspect]
     Active Substance: DARATUMUMAB
     Indication: Plasma cell myeloma
     Dosage: 16 MG/M2, D0, BRIDGING THERAPY, THIRD CYCLE, AS A PART OF SHORTENED PROTOCOL POM-PAD-DARA
     Route: 065
     Dates: start: 20230704
  17. DARATUMUMAB [Suspect]
     Active Substance: DARATUMUMAB
     Indication: Plasma cell myeloma
     Dosage: 16 MG/M2, D3, BRIDGING THERAPY, THIRD CYCLE, AS A PART OF SHORTENED PROTOCOL POM-PAD-DARA
     Route: 065
     Dates: start: 20230707
  18. DARATUMUMAB [Suspect]
     Active Substance: DARATUMUMAB
     Indication: Plasma cell myeloma
     Dosage: 16 MG/M2, D3, BRIDGING THERAPY, SECOND CYCLE, AS A PART OF SHORTENED PROTOCOL POM-PAD-DARA
     Route: 065
     Dates: start: 20230615
  19. DARATUMUMAB [Suspect]
     Active Substance: DARATUMUMAB
     Indication: Plasma cell myeloma
     Dosage: 16 MG/M2, D5, BRIDGING THERAPY
     Route: 065
     Dates: start: 20230521
  20. DARATUMUMAB [Suspect]
     Active Substance: DARATUMUMAB
     Indication: Plasma cell myeloma
     Dosage: 16 MG/M2, D0, BRIDGING THERAPY
     Route: 065
     Dates: start: 20230516
  21. DARATUMUMAB [Suspect]
     Active Substance: DARATUMUMAB
     Indication: Plasma cell myeloma
     Dosage: 16 MG/M2, D0, BRIDGING THERAPY, SECOND CYCLE, AS A PART OF SHORTENED PROTOCOL POM-PAD-DARA
     Route: 065
     Dates: start: 20230612
  22. DEXAMETHASONE [Suspect]
     Active Substance: DEXAMETHASONE
     Indication: Plasma cell myeloma
     Dosage: 20 MG, D1, BRIDGING THERAPY, THIRD CYCLE, AS A PART OF SHORTENED PROTOCOL POM-PAD-DARA
     Route: 065
     Dates: start: 20230705
  23. DEXAMETHASONE [Suspect]
     Active Substance: DEXAMETHASONE
     Indication: Plasma cell myeloma
     Dosage: 20 MG, D1, BRIDGING THERAPY, SECOND CYCLE, AS A PART OF SHORTENED PROTOCOL POM-PAD-DARA
     Route: 065
     Dates: start: 20230612
  24. DEXAMETHASONE [Suspect]
     Active Substance: DEXAMETHASONE
     Indication: Plasma cell myeloma
     Dosage: 20 MG, D0, BRIDGING THERAPY, SECOND CYCLE, AS A PART OF SHORTENED PROTOCOL POM-PAD-DARA
     Route: 065
     Dates: start: 20230612
  25. DEXAMETHASONE [Suspect]
     Active Substance: DEXAMETHASONE
     Indication: Plasma cell myeloma
     Dosage: 20 MG, D4, BRIDGING THERAPY
     Route: 065
     Dates: start: 20230520
  26. DEXAMETHASONE [Suspect]
     Active Substance: DEXAMETHASONE
     Indication: Plasma cell myeloma
     Dosage: 20 MG, D5, BRIDGING THERAPY
     Route: 065
     Dates: start: 20230521
  27. DEXAMETHASONE [Suspect]
     Active Substance: DEXAMETHASONE
     Indication: Plasma cell myeloma
     Dosage: 20 MG, D1, BRIDGING THERAPY
     Route: 065
     Dates: start: 20230517
  28. DEXAMETHASONE [Suspect]
     Active Substance: DEXAMETHASONE
     Indication: Plasma cell myeloma
     Dosage: 20 MG, D0, BRIDGING THERAPY, THIRD CYCLE, AS A PART OF SHORTENED PROTOCOL POM-PAD-DARA
     Route: 065
     Dates: start: 20230704
  29. DEXAMETHASONE [Suspect]
     Active Substance: DEXAMETHASONE
     Indication: Plasma cell myeloma
     Dosage: 20 MG, D2, BRIDGING THERAPY
     Route: 065
     Dates: start: 20230518
  30. DEXAMETHASONE [Suspect]
     Active Substance: DEXAMETHASONE
     Indication: Plasma cell myeloma
     Dosage: 20 MG, D2, BRIDGING THERAPY, THIRD CYCLE, AS A PART OF SHORTENED PROTOCOL POM-PAD-DARA
     Route: 065
     Dates: start: 20230706
  31. DEXAMETHASONE [Suspect]
     Active Substance: DEXAMETHASONE
     Indication: Plasma cell myeloma
     Dosage: 20 MG, D2, BRIDGING THERAPY, SECOND CYCLE, AS A PART OF SHORTENED PROTOCOL POM-PAD-DARA
     Route: 065
     Dates: start: 20230614
  32. DEXAMETHASONE [Suspect]
     Active Substance: DEXAMETHASONE
     Indication: Plasma cell myeloma
     Dosage: 20 MG, D0, BRIDGING THERAPY
     Route: 065
     Dates: start: 20230516

REACTIONS (1)
  - Plasma cell myeloma [Unknown]

NARRATIVE: CASE EVENT DATE: 20230101
